FAERS Safety Report 8718631 (Version 2)
Quarter: 2012Q4

REPORT INFORMATION
  Report Type: 
  Country: US (occurrence: US)
  Receive Date: 20120810
  Receipt Date: 20120905
  Transmission Date: 20130627
  Serious: No
  Sender: FDA-Public Use
  Company Number: US-ASTRAZENECA-2012SE13379

PATIENT
  Age: 65 Year
  Sex: Female

DRUGS (2)
  1. ARIMIDEX [Suspect]
     Route: 048
  2. TENORMIN [Suspect]
     Route: 048

REACTIONS (4)
  - Hyporeflexia [Unknown]
  - Hypertension [Unknown]
  - Blood pressure inadequately controlled [Unknown]
  - Migraine [Unknown]
